FAERS Safety Report 9111673 (Version 1)
Quarter: 2013Q1

REPORT INFORMATION
  Report Type: Spontaneous
  Country: US (occurrence: US)
  Receive Date: 20130219
  Receipt Date: 20130219
  Transmission Date: 20140127
  Serious: No
  Sender: FDA-Public Use
  Company Number: US-BRISTOL-MYERS SQUIBB COMPANY-16737124

PATIENT
  Age: 58 Year
  Sex: Female
  Weight: 68.03 kg

DRUGS (7)
  1. ORENCIA [Suspect]
     Indication: RHEUMATOID ARTHRITIS
     Dosage: LAST INF:10MAY2012
     Route: 042
     Dates: start: 20120119
  2. PREDNISONE [Suspect]
  3. CHEMOTHERAPY [Suspect]
  4. PROZAC [Concomitant]
  5. FENTANYL PATCH [Concomitant]
  6. PERCOCET [Concomitant]
  7. RITALIN [Concomitant]
     Indication: FATIGUE

REACTIONS (12)
  - White blood cell count increased [Not Recovered/Not Resolved]
  - Blood sodium decreased [Unknown]
  - Contusion [Unknown]
  - Scar [Unknown]
  - Erythema [Unknown]
  - Ligament rupture [Unknown]
  - Vision blurred [Unknown]
  - Stomatitis [Unknown]
  - Fatigue [Unknown]
  - Dizziness [Unknown]
  - Vomiting [Unknown]
  - Diarrhoea [Unknown]
